FAERS Safety Report 21492681 (Version 1)
Quarter: 2022Q4

REPORT INFORMATION
  Report Type: Spontaneous
  Country: US (occurrence: None)
  Receive Date: 20221020
  Receipt Date: 20221020
  Transmission Date: 20230113
  Serious: Yes (Other)
  Sender: FDA-Public Use
  Company Number: None

PATIENT
  Age: 68 Year
  Sex: Female
  Weight: 86.85 kg

DRUGS (12)
  1. METOPROLOL [Suspect]
     Active Substance: METOPROLOL
     Indication: Hypertension
  2. METOPROLOL [Suspect]
     Active Substance: METOPROLOL
     Indication: Palpitations
  3. KCL [Concomitant]
     Active Substance: POTASSIUM CHLORIDE
  4. Chlorthiadone [Concomitant]
  5. CEFADROXIL [Concomitant]
     Active Substance: CEFADROXIL
  6. MAGNESIUM CITRATE [Concomitant]
     Active Substance: MAGNESIUM CITRATE
  7. MINERALS\VITAMINS [Concomitant]
     Active Substance: MINERALS\VITAMINS
  8. ASCORBIC ACID [Concomitant]
  9. LYSINE [Concomitant]
     Active Substance: LYSINE
  10. THIAMINE [Concomitant]
     Active Substance: THIAMINE
  11. VITAMIN D3 [Concomitant]
     Active Substance: CHOLECALCIFEROL
  12. CALCIUM CITRATE [Concomitant]
     Active Substance: CALCIUM CITRATE

REACTIONS (7)
  - Muscle tightness [None]
  - Jaw disorder [None]
  - Eating disorder [None]
  - Arrhythmia [None]
  - Extrasystoles [None]
  - Hypokalaemia [None]
  - Facial spasm [None]

NARRATIVE: CASE EVENT DATE: 20221016
